FAERS Safety Report 6294375-9 (Version None)
Quarter: 2009Q3

REPORT INFORMATION
  Report Type: 
  Country: None (occurrence: None)
  Receive Date: 20090803
  Receipt Date: 20090710
  Transmission Date: 20100115
  Serious: No
  Sender: FDA-Public Use
  Company Number: US-BAYER-200926372NA

PATIENT
  Sex: Female

DRUGS (1)
  1. YAZ [Suspect]
     Indication: UNEVALUABLE EVENT
     Route: 048

REACTIONS (5)
  - ALOPECIA [None]
  - CONSTIPATION [None]
  - HYPERTHYROIDISM [None]
  - SLUGGISHNESS [None]
  - WEIGHT INCREASED [None]
